FAERS Safety Report 4693630-3 (Version None)
Quarter: 2005Q2

REPORT INFORMATION
  Report Type: 
  Country: None (occurrence: None)
  Receive Date: 20050615
  Receipt Date: 20050531
  Transmission Date: 20051028
  Serious: Yes (Hospitalization, Other)
  Sender: FDA-Public Use
  Company Number: USA050599339

PATIENT
  Age: 60 Year
  Sex: Female
  Weight: 83 kg

DRUGS (9)
  1. HUMALOG [Suspect]
     Dates: start: 20000101, end: 20020101
  2. HUMALOG [Suspect]
     Dates: start: 20020101
  3. POTASSIUM CHLORIDE [Concomitant]
  4. LASIX [Concomitant]
  5. ACTOS [Concomitant]
  6. METFORMIN HCL [Concomitant]
  7. PLAVIX [Concomitant]
  8. ROFECOXIB [Concomitant]
  9. TOLTERODINE [Concomitant]

REACTIONS (5)
  - BLADDER DISORDER [None]
  - CEREBROVASCULAR ACCIDENT [None]
  - DIABETIC COMA [None]
  - MYOCARDIAL INFARCTION [None]
  - PHARMACEUTICAL PRODUCT COMPLAINT [None]
